FAERS Safety Report 9830923 (Version 1)
Quarter: 2014Q1

REPORT INFORMATION
  Report Type: Spontaneous
  Country: US (occurrence: US)
  Receive Date: 20140120
  Receipt Date: 20140120
  Transmission Date: 20141002
  Serious: Yes (Hospitalization, Other)
  Sender: FDA-Public Use
  Company Number: PHEH2014US001168

PATIENT
  Sex: Female

DRUGS (24)
  1. EXELON [Suspect]
     Dosage: 06 MG, BID
  2. EXELON [Suspect]
     Dosage: UNK UKN, UNK
  3. ARICEPT [Suspect]
     Dosage: 05 MG, BID
  4. XARELTO [Concomitant]
     Dosage: 20 MG, UNK
  5. DIGOXIN [Concomitant]
     Dosage: 0.125 MG, UNK
  6. EFFEXOR [Concomitant]
     Dosage: 75 MG, UNK
  7. LIPITOR [Concomitant]
     Dosage: 10 MG, UNK
  8. LEVOTHYROXINE [Concomitant]
     Dosage: 88 UG, UNK
  9. NAMENDA [Concomitant]
     Dosage: 10 MG, BID
  10. FUROSEMIDE [Concomitant]
     Dosage: 40 MG, UNK
  11. PAXIL [Concomitant]
     Dosage: UNK UKN, UNK
  12. COUMADIN [Concomitant]
     Dosage: UNK UKN, UNK
  13. FOSAMAX [Concomitant]
     Dosage: UNK UKN, UNK
  14. ALLOPURINOL [Concomitant]
     Dosage: UNK UKN, UNK
  15. LOVAZA [Concomitant]
     Dosage: UNK UKN, UNK
  16. POTASSIUM [Concomitant]
     Dosage: 20 MG, UNK
  17. B12 [Concomitant]
     Dosage: UNK UKN, QMO
  18. CALCIUM [Concomitant]
     Dosage: 600 MG, BID
  19. GLUCOSAMIN CHONDROITIN [Concomitant]
     Dosage: UNK UKN, UNK
  20. IRON [Concomitant]
     Dosage: 65 MG, TID
  21. COQ10 [Concomitant]
     Dosage: UNK UKN, UNK
  22. VIT B COMPLEX [Concomitant]
     Dosage: 01 DF, QD
  23. VIT C [Concomitant]
     Dosage: 1000 IU, DAILY
  24. VITAMIN D [Concomitant]
     Dosage: 1000 IU, DAILY

REACTIONS (9)
  - Fall [Unknown]
  - Cerebrovascular accident [Unknown]
  - Memory impairment [Unknown]
  - Muscle injury [Unknown]
  - Pain [Unknown]
  - Aggression [Unknown]
  - Headache [Unknown]
  - Agitation [Unknown]
  - Vomiting [Unknown]
